FAERS Safety Report 6496810-X (Version None)
Quarter: 2009Q4

REPORT INFORMATION
  Report Type: 
  Country: None (occurrence: None)
  Receive Date: 20091125
  Receipt Date: 20090406
  Transmission Date: 20100525
  Serious: Yes (Other)
  Sender: FDA-Public Use
  Company Number: 2009BH005517

PATIENT
  Age: 51 Year
  Sex: Male

DRUGS (10)
  1. DIANEAL [Suspect]
     Indication: PERITONEAL DIALYSIS
     Dosage: 10 L; EVERY DAY; IP
     Route: 033
     Dates: start: 20070101
  2. BACTRIM [Suspect]
     Indication: PERITONITIS
     Dates: start: 20090301
  3. PHOSLO [Concomitant]
  4. FLAXSEED OIL [Concomitant]
  5. LOVAZA [Concomitant]
  6. SYNTHROID [Concomitant]
  7. NU-IRON [Concomitant]
  8. COLACE [Concomitant]
  9. LIPITOR [Concomitant]
  10. LACTULOSE [Concomitant]

REACTIONS (3)
  - HEPATIC ENZYME INCREASED [None]
  - OEDEMA [None]
  - PERITONITIS [None]
